FAERS Safety Report 9706878 (Version 5)
Quarter: 2014Q1

REPORT INFORMATION
  Report Type: Report from Study
  Country: PE (occurrence: PE)
  Receive Date: 20131125
  Receipt Date: 20140211
  Transmission Date: 20141002
  Serious: Yes (Hospitalization, Other)
  Sender: FDA-Public Use
  Company Number: PE-JNJFOC-20130600726

PATIENT
  Age: 33 Year
  Sex: Female
  Weight: 52 kg

DRUGS (7)
  1. TMC125 [Suspect]
     Indication: HIV INFECTION
     Route: 048
     Dates: start: 20121108, end: 20130531
  2. TENVIR [Suspect]
     Indication: HIV INFECTION
     Route: 048
     Dates: start: 20121108
  3. RITOLOP [Suspect]
     Indication: HIV INFECTION
     Dosage: 400 MG/100 MG
     Route: 048
     Dates: start: 20130531
  4. GLIBENCAR [Suspect]
     Indication: HIV INFECTION
     Route: 048
     Dates: start: 20121108
  5. NIFEDIPINE [Suspect]
     Indication: COMPLICATION OF PREGNANCY
     Route: 048
     Dates: start: 20131109, end: 20131110
  6. BETAMETHASONE [Suspect]
     Indication: COMPLICATION OF PREGNANCY
     Route: 030
     Dates: start: 20131109, end: 20131110
  7. XYLOCAINE [Suspect]
     Indication: ANAESTHESIA
     Route: 037
     Dates: start: 20131110, end: 20131110

REACTIONS (2)
  - Premature delivery [Recovered/Resolved]
  - Exposure during pregnancy [Recovered/Resolved]
